FAERS Safety Report 5901199-8 (Version None)
Quarter: 2008Q3

REPORT INFORMATION
  Report Type: 
  Country: None (occurrence: None)
  Receive Date: 20080929
  Receipt Date: 20080617
  Transmission Date: 20090109
  Serious: No
  Sender: FDA-Public Use
  Company Number: US-BRISTOL-MYERS SQUIBB COMPANY-14209472

PATIENT
  Age: 58 Year
  Sex: Female
  Weight: 109 kg

DRUGS (22)
  1. ORENCIA [Suspect]
     Indication: PSORIATIC ARTHROPATHY
     Dosage: THERAPY START DATE: 26-FEB-2008
     Route: 042
     Dates: start: 20080515
  2. METHOTREXATE [Concomitant]
  3. FOLIC ACID [Concomitant]
  4. TOPROL-XL [Concomitant]
  5. TOPAMAX [Concomitant]
  6. LASIX [Concomitant]
  7. ZOLOFT [Concomitant]
  8. SYNTHROID [Concomitant]
  9. ZANTAC [Concomitant]
  10. ZANAFLEX [Concomitant]
  11. NEURONTIN [Concomitant]
  12. WELCHOL [Concomitant]
  13. ASPIRIN [Concomitant]
  14. ADVAIR DISKUS 100/50 [Concomitant]
  15. GLUCOSAMINE [Concomitant]
  16. CALCIUM + VITAMIN D [Concomitant]
  17. FLONASE [Concomitant]
  18. NITROGLYCERIN [Concomitant]
  19. VALTREX [Concomitant]
  20. ALBUTEROL [Concomitant]
  21. KYTRIL [Concomitant]
  22. DESYREL [Concomitant]

REACTIONS (1)
  - MUSCLE SPASMS [None]
